FAERS Safety Report 5888615-5 (Version None)
Quarter: 2008Q3

REPORT INFORMATION
  Report Type: 
  Country: None (occurrence: None)
  Receive Date: 20080918
  Receipt Date: 20080911
  Transmission Date: 20090109
  Serious: Yes (Other)
  Sender: FDA-Public Use
  Company Number: ES-GENENTECH-268005

PATIENT
  Age: 52 Year
  Sex: Female

DRUGS (3)
  1. MABTHERA [Suspect]
     Indication: KIDNEY TRANSPLANT REJECTION
     Dosage: 500 MG, SINGLE
  2. POLYGAM [Concomitant]
     Indication: DRUG USE FOR UNKNOWN INDICATION
  3. PLASMA EXCHANGE [Concomitant]
     Indication: DRUG USE FOR UNKNOWN INDICATION

REACTIONS (1)
  - PNEUMOCYSTIS JIROVECI PNEUMONIA [None]
